FAERS Safety Report 26047467 (Version 1)
Quarter: 2025Q4

REPORT INFORMATION
  Report Type: Spontaneous
  Country: EU (occurrence: EU)
  Receive Date: 20251114
  Receipt Date: 20251114
  Transmission Date: 20260118
  Serious: Yes (Hospitalization)
  Sender: NOVARTIS
  Company Number: EU-002147023-NVSC2025DE173999

PATIENT
  Age: 83 Year
  Sex: Female

DRUGS (1)
  1. MIDOSTAURIN [Suspect]
     Active Substance: MIDOSTAURIN
     Indication: Advanced systemic mastocytosis
     Dosage: 200 MG, QD (LAST DOSE WAS 200 MG/DAY)
     Route: 065

REACTIONS (5)
  - Withdrawal syndrome [Unknown]
  - Fatigue [Unknown]
  - Oedema [Unknown]
  - Diarrhoea [Unknown]
  - Nausea [Unknown]
